FAERS Safety Report 17160507 (Version 5)
Quarter: 2020Q1

REPORT INFORMATION
  Report Type: Report from Study
  Country: US (occurrence: US)
  Receive Date: 20191216
  Receipt Date: 20200310
  Transmission Date: 20200409
  Serious: Yes (Life-Threatening, Hospitalization, Other)
  Sender: FDA-Public Use
  Company Number: US-SHIRE-US201943484

PATIENT
  Age: 75 Year
  Sex: Male

DRUGS (4)
  1. GATTEX [Suspect]
     Active Substance: TEDUGLUTIDE\WATER
     Dosage: 3.5 MILLIGRAM, 1X/DAY:QD
     Route: 058
     Dates: start: 20191227, end: 20200129
  2. GATTEX [Suspect]
     Active Substance: TEDUGLUTIDE\WATER
     Indication: ILEOSTOMY
     Dosage: 3.5 UNK
     Route: 058
     Dates: start: 20180312
  3. GATTEX [Suspect]
     Active Substance: TEDUGLUTIDE\WATER
     Indication: SHORT-BOWEL SYNDROME
     Dosage: 3.5 MILLIGRAM, 1X/DAY:QD
     Route: 058
     Dates: start: 20191204
  4. GATTEX [Suspect]
     Active Substance: TEDUGLUTIDE\WATER
     Dosage: 3.4 MILLIGRAM, 1X/DAY:QD
     Route: 058
     Dates: start: 20200204, end: 20200304

REACTIONS (2)
  - Product dose omission [Unknown]
  - Myocardial infarction [Recovering/Resolving]

NARRATIVE: CASE EVENT DATE: 20191201
